FAERS Safety Report 16103518 (Version 2)
Quarter: 2019Q1

REPORT INFORMATION
  Report Type: Spontaneous
  Country: US (occurrence: US)
  Receive Date: 20190322
  Receipt Date: 20190322
  Transmission Date: 20190418
  Serious: No
  Sender: FDA-Public Use
  Company Number: US-SHIRE-US201909114

PATIENT
  Sex: Female

DRUGS (1)
  1. GATTEX [Suspect]
     Active Substance: TEDUGLUTIDE\WATER
     Indication: PRODUCT USED FOR UNKNOWN INDICATION
     Dosage: 0.3190 (UNIT UNKNOWN), QOD
     Route: 065
     Dates: start: 21071214

REACTIONS (3)
  - Hepatic enzyme abnormal [Recovering/Resolving]
  - Osteoporosis [Recovering/Resolving]
  - Arthritis [Recovering/Resolving]
